FAERS Safety Report 20005193 (Version 1)
Quarter: 2021Q4

REPORT INFORMATION
  Report Type: Spontaneous
  Country: US (occurrence: US)
  Receive Date: 20211027
  Receipt Date: 20211027
  Transmission Date: 20220303
  Serious: No
  Sender: FDA-Public Use
  Company Number: None

PATIENT

DRUGS (1)
  1. CASIRIVIMAB\IMDEVIMAB [Suspect]
     Active Substance: CASIRIVIMAB\IMDEVIMAB
     Indication: COVID-19
     Dates: start: 20211001, end: 20211001

REACTIONS (4)
  - Product appearance confusion [None]
  - Extra dose administered [None]
  - Product dose omission issue [None]
  - Product communication issue [None]

NARRATIVE: CASE EVENT DATE: 20211001
